FAERS Safety Report 23642968 (Version 1)
Quarter: 2024Q1

REPORT INFORMATION
  Report Type: Spontaneous
  Country: US (occurrence: None)
  Receive Date: 20240315
  Receipt Date: 20240315
  Transmission Date: 20240409
  Serious: Yes (Hospitalization)
  Sender: FDA-Public Use
  Company Number: None

PATIENT
  Age: 81 Year
  Sex: Male
  Weight: 75 kg

DRUGS (4)
  1. TECLISTAMAB [Suspect]
     Active Substance: TECLISTAMAB
     Indication: Plasma cell myeloma
     Dosage: FREQUENCY : ONCE;?
     Route: 058
     Dates: start: 20240123
  2. ROPINIROLE [Concomitant]
     Active Substance: ROPINIROLE
     Dates: start: 20231211
  3. LANSOPRAZOLE [Concomitant]
     Active Substance: LANSOPRAZOLE
  4. PREGABALIN [Concomitant]
     Active Substance: PREGABALIN
     Dates: start: 20231220

REACTIONS (6)
  - Cytokine release syndrome [None]
  - Chills [None]
  - Dyspnoea [None]
  - Oxygen saturation decreased [None]
  - Blood pressure decreased [None]
  - Unresponsive to stimuli [None]

NARRATIVE: CASE EVENT DATE: 20240124
